FAERS Safety Report 13530596 (Version 4)
Quarter: 2017Q3

REPORT INFORMATION
  Report Type: Report from Study
  Country: CA (occurrence: CA)
  Receive Date: 20170510
  Receipt Date: 20170926
  Transmission Date: 20171127
  Serious: Yes (Hospitalization, Other)
  Sender: FDA-Public Use
  Company Number: CA-BRISTOL-MYERS SQUIBB COMPANY-BMS-2017-040576

PATIENT
  Age: 71 Year
  Sex: Male

DRUGS (1)
  1. ABATACEPT [Suspect]
     Active Substance: ABATACEPT
     Indication: RHEUMATOID ARTHRITIS
     Dosage: 750 MG, Q4WK
     Route: 042
     Dates: start: 20090723

REACTIONS (8)
  - Diarrhoea [Unknown]
  - Pyrexia [Unknown]
  - Blood urine present [Not Recovered/Not Resolved]
  - Neutropenia [Unknown]
  - Haematochezia [Unknown]
  - Intestinal obstruction [Not Recovered/Not Resolved]
  - Abdominal pain [Unknown]
  - Back pain [Unknown]

NARRATIVE: CASE EVENT DATE: 201701
